FAERS Safety Report 5408555-5 (Version None)
Quarter: 2007Q3

REPORT INFORMATION
  Report Type: 
  Country: None (occurrence: None)
  Receive Date: 20070808
  Receipt Date: 20070802
  Transmission Date: 20080115
  Serious: Yes (Death)
  Sender: FDA-Public Use
  Company Number: IE-AVENTIS-200713797EU

PATIENT
  Age: 61 Year
  Sex: Male

DRUGS (15)
  1. ENOXAPARIN SODIUM [Suspect]
     Indication: PROPHYLAXIS
     Dates: end: 20070620
  2. ZOTON [Suspect]
     Indication: PROPHYLAXIS
     Route: 048
     Dates: start: 20070528, end: 20070709
  3. VANCOMYCIN HCL [Suspect]
     Dates: start: 20070529, end: 20070622
  4. OMEPRAZOLE [Suspect]
     Route: 048
  5. DIFENE [Suspect]
     Dates: end: 20070607
  6. INNOHEP                            /01707902/ [Suspect]
     Dates: start: 20070622, end: 20070709
  7. VELOSEF                            /00338001/ [Suspect]
     Dates: start: 20070625, end: 20070625
  8. FUCIDIN                            /00065702/ [Concomitant]
  9. FLAGYL [Concomitant]
  10. LINEZOLID [Concomitant]
  11. SEPTRIN [Concomitant]
  12. ASPIRIN [Concomitant]
  13. VALSARTAN [Concomitant]
  14. INDAPAMIDE SR [Concomitant]
  15. BISOPROLOL [Concomitant]

REACTIONS (1)
  - TOXIC EPIDERMAL NECROLYSIS [None]
